FAERS Safety Report 4369637-2 (Version None)
Quarter: 2004Q2

REPORT INFORMATION
  Report Type: 
  Country: None (occurrence: None)
  Receive Date: 20040528
  Receipt Date: 20040519
  Transmission Date: 20050107
  Serious: No
  Sender: FDA-Public Use
  Company Number: 2004UW10399

PATIENT
  Sex: Male

DRUGS (3)
  1. CASODEX [Suspect]
     Indication: PROSTATE CANCER
     Dosage: 50 MG QD PO
     Route: 048
  2. CASODEX [Suspect]
     Indication: PROSTATE CANCER
     Dosage: 50 MG BID PO
     Route: 048
  3. CASODEX [Suspect]
     Indication: PROSTATE CANCER
     Dosage: 150 MG QD PO
     Route: 048
     Dates: start: 20031201

REACTIONS (3)
  - DRUG INTOLERANCE [None]
  - PROSTATIC SPECIFIC ANTIGEN INCREASED [None]
  - RENAL FAILURE [None]
